FAERS Safety Report 16488731 (Version 6)
Quarter: 2019Q3

REPORT INFORMATION
  Report Type: Report from Study
  Country: US (occurrence: US)
  Receive Date: 20190627
  Receipt Date: 20190809
  Transmission Date: 20191004
  Serious: Yes (Death, Hospitalization)
  Sender: FDA-Public Use
  Company Number: US-ACTELION-A-NJ2019-192304

PATIENT
  Age: 20 Year
  Sex: Female
  Weight: 51.25 kg

DRUGS (4)
  1. OPSUMIT [Suspect]
     Active Substance: MACITENTAN
     Indication: PULMONARY HYPERTENSION
     Dosage: 10 MG, QD
     Route: 048
  2. REMODULIN [Concomitant]
     Active Substance: TREPROSTINIL
  3. CHLORAPREP [Suspect]
     Active Substance: CHLORHEXIDINE GLUCONATE\ISOPROPYL ALCOHOL
     Indication: PRODUCT USED FOR UNKNOWN INDICATION
     Route: 065
  4. VELETRI [Suspect]
     Active Substance: EPOPROSTENOL
     Indication: PULMONARY HYPERTENSION
     Dosage: 40 NG/KG, PER MIN
     Route: 042

REACTIONS (24)
  - Sensitive skin [Unknown]
  - Dermatitis contact [Unknown]
  - Catheter site pruritus [Unknown]
  - Flushing [Unknown]
  - Catheter site irritation [Unknown]
  - Therapy non-responder [Unknown]
  - Device related infection [Unknown]
  - Catheter site thrombosis [Unknown]
  - Thrombosis [Unknown]
  - Vomiting [Unknown]
  - Malaise [Unknown]
  - Sepsis [Unknown]
  - Abdominal pain upper [Unknown]
  - Pain in jaw [Unknown]
  - Skin infection [Unknown]
  - Syncope [Unknown]
  - Nausea [Unknown]
  - Catheter site haemorrhage [Unknown]
  - Death [Fatal]
  - Vascular device infection [Unknown]
  - Blood culture positive [Unknown]
  - Catheter site pain [Unknown]
  - Asthenia [Unknown]
  - Diarrhoea [Unknown]

NARRATIVE: CASE EVENT DATE: 20190801
